FAERS Safety Report 4885765-7 (Version None)
Quarter: 2006Q1

REPORT INFORMATION
  Report Type: 
  Country: None (occurrence: None)
  Receive Date: 20060117
  Receipt Date: 20060103
  Transmission Date: 20060701
  Serious: Yes (Hospitalization)
  Sender: FDA-Public Use
  Company Number: 2006002809

PATIENT
  Age: 91 Year
  Sex: Female

DRUGS (7)
  1. CELECOXIB (CELECOXIB) [Suspect]
     Indication: BACK PAIN
     Dosage: 400 MG (200 MG, 2 IN 1 D)
     Dates: start: 20030924, end: 20031027
  2. AMIODARONE HCL [Concomitant]
  3. LYSINE (LYSINE) [Concomitant]
  4. ATORVASTATIN CALCIUM [Concomitant]
  5. CO-BETALOC (HYDROCHLOROTHIAZIDE, METOPROLOL TARTRATE) [Concomitant]
  6. BROMAZEPAM (BROMAZEPAM) [Concomitant]
  7. TRIMETAZIDINE DIHYDROCHLORIDE (TRIMETAZIDINE HYDROCHLORIDE) [Concomitant]

REACTIONS (4)
  - ABDOMINAL TENDERNESS [None]
  - COLITIS [None]
  - CYTOMEGALOVIRUS INFECTION [None]
  - JAUNDICE [None]
